FAERS Safety Report 11132923 (Version 3)
Quarter: 2015Q3

REPORT INFORMATION
  Report Type: Spontaneous
  Country: US (occurrence: US)
  Receive Date: 20150522
  Receipt Date: 20150723
  Transmission Date: 20151125
  Serious: No
  Sender: FDA-Public Use
  Company Number: US-PFIZER INC-2015173580

PATIENT
  Age: 60 Year
  Sex: Male

DRUGS (2)
  1. LYRICA [Suspect]
     Active Substance: PREGABALIN
     Indication: PAIN
     Dosage: 150 MG, 2X/DAY
  2. LYRICA [Suspect]
     Active Substance: PREGABALIN
     Indication: INTERVERTEBRAL DISC DEGENERATION

REACTIONS (6)
  - Drug withdrawal syndrome [Recovered/Resolved]
  - Toothache [Recovered/Resolved]
  - Feeling abnormal [Unknown]
  - Pain [Recovered/Resolved]
  - Condition aggravated [Recovered/Resolved]
  - Activities of daily living impaired [Unknown]
